FAERS Safety Report 19995711 (Version 8)
Quarter: 2024Q1

REPORT INFORMATION
  Report Type: Report from Study
  Country: IN (occurrence: IN)
  Receive Date: 20211026
  Receipt Date: 20240318
  Transmission Date: 20240409
  Serious: Yes (Hospitalization, Other)
  Sender: FDA-Public Use
  Company Number: IN-NOVARTISPH-NVSC2021IN241099

PATIENT
  Age: 66 Year
  Sex: Female

DRUGS (11)
  1. RIBOCICLIB [Suspect]
     Active Substance: RIBOCICLIB
     Indication: Breast cancer metastatic
     Dosage: 600 MG, QD
     Route: 065
     Dates: start: 20210201
  2. RIBOCICLIB [Suspect]
     Active Substance: RIBOCICLIB
     Indication: Hormone receptor positive HER2 negative breast cancer
     Dosage: 400 MG, QD (21 DAYS FOLLOWED BY 1 DAY OFF)
     Route: 048
     Dates: start: 20210204
  3. RIBOCICLIB [Suspect]
     Active Substance: RIBOCICLIB
     Dosage: 400 MG, QD
     Route: 065
     Dates: start: 2021, end: 20210925
  4. RIBOCICLIB [Suspect]
     Active Substance: RIBOCICLIB
     Dosage: 400 MG, QD
     Route: 065
     Dates: start: 20211002
  5. RIBOCICLIB [Suspect]
     Active Substance: RIBOCICLIB
     Dosage: 400 MG, QD
     Route: 065
     Dates: start: 20221025
  6. RIBOCICLIB [Suspect]
     Active Substance: RIBOCICLIB
     Dosage: 400 MG, QD
     Route: 065
     Dates: start: 20230116
  7. RIBOCICLIB [Suspect]
     Active Substance: RIBOCICLIB
     Dosage: 400 MG, QD
     Route: 048
     Dates: start: 20230411
  8. RIBOCICLIB [Suspect]
     Active Substance: RIBOCICLIB
     Dosage: 400 MG, QD
     Route: 048
     Dates: start: 20230505
  9. RIBOCICLIB [Suspect]
     Active Substance: RIBOCICLIB
     Dosage: UNK
     Route: 065
  10. LETROZOLE [Concomitant]
     Active Substance: LETROZOLE
     Indication: Product used for unknown indication
     Dosage: 2.5 MG, QD
     Route: 048
  11. CALCIUM CARBONATE\CHOLECALCIFEROL [Concomitant]
     Active Substance: CALCIUM CARBONATE\CHOLECALCIFEROL
     Indication: Product used for unknown indication
     Dosage: 500 MG, QD
     Route: 048

REACTIONS (3)
  - Blood potassium increased [Recovered/Resolved]
  - Metastases to bone [Unknown]
  - Metastases to lung [Unknown]

NARRATIVE: CASE EVENT DATE: 20210925
